FAERS Safety Report 16372124 (Version 44)
Quarter: 2023Q1

REPORT INFORMATION
  Report Type: Spontaneous
  Country: IL (occurrence: IL)
  Receive Date: 20190530
  Receipt Date: 20230302
  Transmission Date: 20230417
  Serious: Yes (Hospitalization, Other)
  Sender: FDA-Public Use
  Company Number: IL-PFIZER INC-2019086542

PATIENT
  Age: 78 Year
  Sex: Female

DRUGS (9)
  1. ELELYSO [Suspect]
     Active Substance: TALIGLUCERASE ALFA
     Indication: Gaucher^s disease
     Dosage: 1600 UNITS/1400 UNITS PER INFUSION TWICE A MONTH, ALTERNATELY
     Route: 042
     Dates: start: 20181126, end: 20181126
  2. ELELYSO [Suspect]
     Active Substance: TALIGLUCERASE ALFA
     Dosage: 1600 UNITS/1400 UNITS PER INFUSION TWICE A MONTH, ALTERNATELY
     Route: 042
  3. ELELYSO [Suspect]
     Active Substance: TALIGLUCERASE ALFA
     Dosage: 1800/1600 IU (9/8 VIALS), EVERY OTHER WEEK
     Route: 042
     Dates: start: 20220612
  4. ELELYSO [Suspect]
     Active Substance: TALIGLUCERASE ALFA
     Dosage: 8 VIALS
     Route: 042
  5. ELELYSO [Suspect]
     Active Substance: TALIGLUCERASE ALFA
     Dosage: 7V/8V EVERY TWO WEEKS (1400/1600 IU)
     Route: 042
  6. ELELYSO [Suspect]
     Active Substance: TALIGLUCERASE ALFA
     Dosage: 7V/8V EVERY TWO WEEKS (1400/1600 IU)
     Route: 042
  7. ELELYSO [Suspect]
     Active Substance: TALIGLUCERASE ALFA
     Dosage: 7V/8V EVERY TWO WEEKS (1400/1600 IU)
     Route: 042
     Dates: start: 20230115
  8. ELELYSO [Suspect]
     Active Substance: TALIGLUCERASE ALFA
     Dosage: 7 VIALS
     Route: 042
  9. ELELYSO [Suspect]
     Active Substance: TALIGLUCERASE ALFA
     Dosage: 7V/8V EVERY TWO WEEKS (1600/1400 IU)
     Route: 042

REACTIONS (16)
  - Blood sodium decreased [Recovered/Resolved]
  - Fall [Not Recovered/Not Resolved]
  - Hypertension [Unknown]
  - Rib fracture [Unknown]
  - Injury [Unknown]
  - Femoral neck fracture [Unknown]
  - COVID-19 [Recovering/Resolving]
  - Atrial fibrillation [Unknown]
  - Pelvic fracture [Not Recovered/Not Resolved]
  - Asthenia [Unknown]
  - Alopecia [Unknown]
  - Head injury [Not Recovered/Not Resolved]
  - Illness [Unknown]
  - Fatigue [Unknown]
  - Somnolence [Recovered/Resolved]
  - Inappropriate schedule of product administration [Unknown]

NARRATIVE: CASE EVENT DATE: 20190401
